FAERS Safety Report 10693743 (Version 3)
Quarter: 2016Q1

REPORT INFORMATION
  Report Type: Spontaneous
  Country: US (occurrence: US)
  Receive Date: 20150106
  Receipt Date: 20160115
  Transmission Date: 20160525
  Serious: Yes (Other)
  Sender: FDA-Public Use
  Company Number: US-BAYER-2015-001106

PATIENT
  Age: 32 Year
  Sex: Female
  Weight: 56.69 kg

DRUGS (2)
  1. MIRENA [Suspect]
     Active Substance: LEVONORGESTREL
     Indication: CONTRACEPTION
     Dosage: 20 MCG/24HR, CONT
     Route: 015
     Dates: start: 200603, end: 20100921
  2. MOTRIN [Concomitant]
     Active Substance: IBUPROFEN
     Dosage: 600 MG, UNK

REACTIONS (8)
  - Emotional distress [None]
  - Injury [None]
  - Anxiety [None]
  - Device issue [None]
  - Genital haemorrhage [None]
  - Pain [None]
  - Uterine perforation [None]
  - Fear [None]

NARRATIVE: CASE EVENT DATE: 2010
